FAERS Safety Report 21848564 (Version 1)
Quarter: 2023Q1

REPORT INFORMATION
  Report Type: Spontaneous
  Country: US (occurrence: None)
  Receive Date: 20230111
  Receipt Date: 20230111
  Transmission Date: 20230418
  Serious: No
  Sender: FDA-Public Use
  Company Number: US-ROCHE-3259106

PATIENT
  Sex: Female

DRUGS (3)
  1. OCREVUS [Suspect]
     Active Substance: OCRELIZUMAB
     Indication: Product used for unknown indication
     Dosage: 1ST INITIAL DOSE
     Route: 065
     Dates: start: 20171229
  2. OCREVUS [Suspect]
     Active Substance: OCRELIZUMAB
     Dosage: 2ND INITIAL DOSE
     Route: 065
     Dates: start: 20180125
  3. OCREVUS [Suspect]
     Active Substance: OCRELIZUMAB
     Dosage: LAST OCREVUS DOSE
     Route: 065
     Dates: start: 20220831

REACTIONS (4)
  - Colitis [Unknown]
  - Cholelithiasis [Unknown]
  - Oropharyngeal pain [Unknown]
  - Hepatic steatosis [Unknown]
